FAERS Safety Report 5276583-9 (Version None)
Quarter: 2007Q1

REPORT INFORMATION
  Report Type: 
  Country: None (occurrence: None)
  Receive Date: 20070327
  Receipt Date: 20070315
  Transmission Date: 20070707
  Serious: Yes (Other)
  Sender: FDA-Public Use
  Company Number: DE-ELI_LILLY_AND_COMPANY-DE200703003863

PATIENT
  Age: 50 Year
  Sex: Female

DRUGS (7)
  1. ZYPREXA [Suspect]
     Indication: SCHIZOAFFECTIVE DISORDER
     Dosage: 10 MG, DAILY (1/D)
     Route: 048
     Dates: start: 20060615, end: 20060630
  2. ZYPREXA [Suspect]
     Dosage: 20 MG, DAILY (1/D)
     Route: 048
     Dates: start: 20060701, end: 20060724
  3. ZYPREXA [Suspect]
     Dosage: 30 MG, DAILY (1/D)
     Route: 048
     Dates: start: 20060725
  4. VALPROATE SODIUM [Concomitant]
     Dosage: 1000 MG, DAILY (1/D)
     Route: 048
     Dates: start: 20060703, end: 20060829
  5. QUILONUM - SLOW RELEASE [Concomitant]
     Dosage: 1350 MG, DAILY (1/D)
     Route: 048
     Dates: start: 20060710
  6. HYLO-COMOD [Concomitant]
     Dosage: UNK, 2/D
     Route: 047
  7. AZOPT [Concomitant]
     Dosage: UNK, 2/D
     Route: 047

REACTIONS (5)
  - ALANINE AMINOTRANSFERASE INCREASED [None]
  - ASPARTATE AMINOTRANSFERASE INCREASED [None]
  - GLUTAMATE DEHYDROGENASE INCREASED [None]
  - PRESCRIBED OVERDOSE [None]
  - SPEECH DISORDER [None]
